FAERS Safety Report 5650907-2 (Version None)
Quarter: 2008Q1

REPORT INFORMATION
  Report Type: 
  Country: None (occurrence: None)
  Receive Date: 20080131
  Receipt Date: 20071207
  Transmission Date: 20080703
  Serious: No
  Sender: FDA-Public Use
  Company Number: US200712002170

PATIENT
  Age: 72 Year
  Sex: Female

DRUGS (12)
  1. BYETTA [Suspect]
     Indication: TYPE 2 DIABETES MELLITUS
     Dosage: 5 UG, 2/D, SUBCUTANEOUS
     Route: 058
     Dates: start: 20070101, end: 20070101
  2. BYETTA [Suspect]
     Indication: TYPE 2 DIABETES MELLITUS
     Dosage: 5 UG, 2/D, SUBCUTANEOUS
     Route: 058
     Dates: start: 20071206
  3. EXENATIDE 10MCG PEN, DISPOSABLE DEVICE (EXENATIDE PEN [Concomitant]
  4. METFORMIN HCL [Concomitant]
  5. GLYBURIDE [Concomitant]
  6. ATENOLOL [Concomitant]
  7. BUTAMIDE (TOLBUTAMIDE) [Concomitant]
  8. ATARAX (ALPRAZOLAM) [Concomitant]
  9. ASPIRIN [Concomitant]
  10. OMEPRAZOLE [Concomitant]
  11. ALEVE (NAPROXEN SODIUM, PSEUDOEPHEDRINE HYDROCHLORIDE) [Concomitant]
  12. TYLENOL  /SCH/ (PARACETAMOL) [Concomitant]

REACTIONS (3)
  - ARTHRALGIA [None]
  - ARTHRITIS [None]
  - GAIT DISTURBANCE [None]
